FAERS Safety Report 18606510 (Version 2)
Quarter: 2020Q4

REPORT INFORMATION
  Report Type: Report from Study
  Country: PL (occurrence: PL)
  Receive Date: 20201211
  Receipt Date: 20201221
  Transmission Date: 20210114
  Serious: Yes (Hospitalization)
  Sender: FDA-Public Use
  Company Number: PL-JNJFOC-20191039331

PATIENT
  Age: 15 Year
  Sex: Male
  Weight: 43.9 kg

DRUGS (6)
  1. DIOSMECTITE [Concomitant]
     Active Substance: MONTMORILLONITE
     Route: 048
     Dates: start: 20190204, end: 20190220
  2. USTEKINUMAB [Suspect]
     Active Substance: USTEKINUMAB
     Indication: CROHN^S DISEASE
     Route: 058
     Dates: start: 20180410, end: 20190702
  3. MESALAMINE. [Concomitant]
     Active Substance: MESALAMINE
     Route: 048
     Dates: start: 20130311
  4. DIOSMECTITE [Concomitant]
     Active Substance: MONTMORILLONITE
     Route: 048
     Dates: start: 20190629, end: 20190630
  5. VITAMIN D                          /00107901/ [Concomitant]
     Active Substance: ERGOCALCIFEROL
     Indication: PROPHYLAXIS
     Route: 048
  6. DIOSMECTITE [Concomitant]
     Active Substance: MONTMORILLONITE
     Route: 048
     Dates: start: 20181225, end: 20190123

REACTIONS (1)
  - Crohn^s disease [Recovered/Resolved]

NARRATIVE: CASE EVENT DATE: 20190702
